FAERS Safety Report 6140571-0 (Version None)
Quarter: 2009Q2

REPORT INFORMATION
  Report Type: 
  Country: None (occurrence: None)
  Receive Date: 20090402
  Receipt Date: 20090324
  Transmission Date: 20091009
  Serious: No
  Sender: FDA-Public Use
  Company Number: US-JNJFOC-20090306638

PATIENT
  Sex: Female
  Weight: 50.35 kg

DRUGS (9)
  1. FENTANYL TRANSDERMAL SYSTEM [Suspect]
     Indication: SPINAL COLUMN STENOSIS
     Route: 062
  2. FENTANYL TRANSDERMAL SYSTEM [Suspect]
     Indication: OSTEOPOROSIS
     Route: 062
  3. NARCO [Concomitant]
     Indication: PAIN
     Dosage: 5/325 MG 1-2 EVERY 4 HOURS.
     Route: 048
  4. SYNTHROID [Concomitant]
     Indication: DRUG USE FOR UNKNOWN INDICATION
     Route: 048
  5. LASIX [Concomitant]
     Indication: CARDIAC DISORDER
     Route: 048
  6. COREG [Concomitant]
     Indication: CARDIAC DISORDER
     Route: 048
  7. OPANA [Concomitant]
     Indication: PAIN
     Route: 048
  8. ZESTRIL [Concomitant]
     Indication: HYPERTENSION
     Route: 048
  9. AMIODARONE HCL [Concomitant]
     Indication: HEART RATE
     Route: 048

REACTIONS (2)
  - PAIN [None]
  - TREATMENT NONCOMPLIANCE [None]
